FAERS Safety Report 4975380-9 (Version None)
Quarter: 2006Q3

REPORT INFORMATION
  Report Type: 
  Country: None (occurrence: None)
  Receive Date: 20060411
  Receipt Date: 20060329
  Transmission Date: 20061208
  Serious: Yes (Death)
  Sender: FDA-Public Use
  Company Number: RS005896-F

PATIENT
  Age: 69 Year
  Sex: Male
  Weight: 60 kg

DRUGS (14)
  1. RABEPRAZOLE SODIUM [Suspect]
     Dosage: ORAL
     Route: 048
  2. DEPAKENE [Suspect]
     Dosage: ORAL
     Route: 048
  3. AMITRIPTYLINE HCL [Suspect]
     Dosage: ORAL
     Route: 048
  4. PREVISCAN (FLUINDIONE) [Suspect]
     Dosage: ORAL
     Route: 048
  5. CORDARONE [Suspect]
     Dosage: ORAL
     Route: 048
  6. IDARAC [Suspect]
     Dosage: ORAL
     Route: 048
  7. ACETAMINOPHEN [Concomitant]
  8. CLONAZEPAM [Concomitant]
  9. ZOLPIDEM TARTRATE [Concomitant]
  10. NITRIDERM (GLYCERYL TRINITRATE) [Concomitant]
  11. LANTUS [Concomitant]
  12. ATARAX [Concomitant]
  13. SMECTA (SMECTITE) [Concomitant]
  14. ZAMADOL (TRAMADOL) [Concomitant]

REACTIONS (1)
  - HEPATITIS FULMINANT [None]
